FAERS Safety Report 4461371-3 (Version None)
Quarter: 2004Q3

REPORT INFORMATION
  Report Type: 
  Country: None (occurrence: None)
  Receive Date: 20040928
  Receipt Date: 20040915
  Transmission Date: 20050211
  Serious: Yes (Death, Other)
  Sender: FDA-Public Use
  Company Number: PHBS2004JP12220

PATIENT
  Age: 59 Year
  Sex: Male

DRUGS (4)
  1. CYCLOSPORINE [Suspect]
     Indication: STEM CELL TRANSPLANT
     Route: 065
     Dates: start: 20030829
  2. METHOTREXATE [Concomitant]
     Indication: STEM CELL TRANSPLANT
  3. BUSULFAN [Concomitant]
     Indication: STEM CELL TRANSPLANT
  4. CYCLOPHOSPHAMIDE [Concomitant]
     Indication: STEM CELL TRANSPLANT

REACTIONS (7)
  - BONE MARROW DISORDER [None]
  - GRAFT VERSUS HOST DISEASE [None]
  - NEUTROPENIA [None]
  - PNEUMONIA ASPERGILLUS [None]
  - RESPIRATORY FAILURE [None]
  - SEPSIS [None]
  - VENOOCCLUSIVE DISEASE [None]
